FAERS Safety Report 7917141-4 (Version None)
Quarter: 2011Q4

REPORT INFORMATION
  Report Type: 
  Country: None (occurrence: None)
  Receive Date: 20111116
  Receipt Date: 20111103
  Transmission Date: 20120403
  Serious: No
  Sender: FDA-Public Use
  Company Number: US-B.I. PHARMACEUTICALS,INC./RIDGEFIELD-2011-BP-25516BP

PATIENT
  Sex: Male

DRUGS (11)
  1. PRADAXA [Suspect]
     Indication: ATRIAL FIBRILLATION
     Dosage: 300 MG
     Route: 048
     Dates: start: 20111012
  2. LITHIUM CARBONATE [Concomitant]
     Indication: BIPOLAR I DISORDER
     Dosage: 900 MG
     Route: 048
     Dates: start: 19750101
  3. BISOPROLOL [Concomitant]
     Indication: CEREBROVASCULAR ACCIDENT PROPHYLAXIS
     Dosage: 10 MG
     Route: 048
     Dates: start: 20010101
  4. GLUCOSAMINE CHONDROITIN [Concomitant]
     Indication: ARTHRITIS
     Dosage: 3000 MG
     Route: 048
     Dates: start: 19960101
  5. NORVASC [Concomitant]
     Indication: CEREBROVASCULAR ACCIDENT PROPHYLAXIS
     Dosage: 5 MG
     Route: 048
     Dates: start: 20010101
  6. PRAVACHOL [Concomitant]
     Indication: PROPHYLAXIS
     Dosage: 20 MG
     Route: 048
     Dates: start: 20010101
  7. MULTI-VITAMIN [Concomitant]
     Indication: ROUTINE HEALTH MAINTENANCE
  8. BENICAR [Concomitant]
     Indication: CEREBROVASCULAR ACCIDENT PROPHYLAXIS
     Route: 048
     Dates: start: 20010101
  9. TRICOR [Concomitant]
     Indication: PROPHYLAXIS
     Dosage: 145 MG
     Route: 048
     Dates: start: 20010101
  10. BENADRYL [Concomitant]
     Indication: INSOMNIA
     Dosage: 50 MG
     Route: 048
     Dates: start: 19810101
  11. MSM [Concomitant]
     Indication: ARTHRITIS
     Dosage: 2000 MG
     Route: 048
     Dates: start: 19960101

REACTIONS (1)
  - MUSCLE STRAIN [None]
